FAERS Safety Report 8170478-9 (Version None)
Quarter: 2012Q1

REPORT INFORMATION
  Report Type: 
  Country: None (occurrence: None)
  Receive Date: 20120228
  Receipt Date: 20120217
  Transmission Date: 20120608
  Serious: Yes (Other)
  Sender: FDA-Public Use
  Company Number: HK-SANOFI-AVENTIS-2012SA011436

PATIENT
  Sex: Male

DRUGS (1)
  1. INDAPAMIDE [Suspect]
     Indication: HYPERTENSION
     Route: 065

REACTIONS (4)
  - BRUGADA SYNDROME [None]
  - HYPONATRAEMIA [None]
  - HYPOKALAEMIA [None]
  - LONG QT SYNDROME [None]
